FAERS Safety Report 14768715 (Version 2)
Quarter: 2018Q4

REPORT INFORMATION
  Report Type: Spontaneous
  Country: US (occurrence: US)
  Receive Date: 20180417
  Receipt Date: 20181025
  Transmission Date: 20190204
  Serious: Yes (Hospitalization, Other)
  Sender: FDA-Public Use
  Company Number: US-ASTRAZENECA-2018SE46443

PATIENT
  Age: 21107 Day
  Sex: Male
  Weight: 113.4 kg

DRUGS (39)
  1. OMEPRAZOLE + SODIUM BICARBONATE [Suspect]
     Active Substance: OMEPRAZOLE\SODIUM BICARBONATE
     Route: 065
  2. ROLAIDS [Concomitant]
     Active Substance: CALCIUM CARBONATE\MAGNESIUM HYDROXIDE
  3. SOTALOL. [Concomitant]
     Active Substance: SOTALOL
     Indication: ATRIAL FIBRILLATION
     Dosage: 80 MG TABLET
     Dates: start: 20130315
  4. CRESTOR [Concomitant]
     Active Substance: ROSUVASTATIN CALCIUM
     Indication: HYPERTENSION
     Dosage: 5 MG TABLET
     Dates: start: 20150615, end: 20160705
  5. CEFDINIR. [Concomitant]
     Active Substance: CEFDINIR
     Indication: ANTIBIOTIC PROPHYLAXIS
     Dates: start: 20150613
  6. METHYLPREDNISOLONE. [Concomitant]
     Active Substance: METHYLPREDNISOLONE
     Indication: NEOPLASM MALIGNANT
     Dates: start: 20150808
  7. OMEPRAZOLE. [Suspect]
     Active Substance: OMEPRAZOLE
     Indication: GASTROOESOPHAGEAL REFLUX DISEASE
     Route: 048
     Dates: start: 2014, end: 2017
  8. TUMS [Concomitant]
     Active Substance: CALCIUM CARBONATE
  9. ZOLPIDEM TARTRATE. [Concomitant]
     Active Substance: ZOLPIDEM TARTRATE
     Indication: INSOMNIA
     Dosage: 10 MG TAB
     Dates: start: 20130115
  10. ZETIA [Concomitant]
     Active Substance: EZETIMIBE
     Indication: BLOOD CHOLESTEROL INCREASED
     Dosage: 10 MG TABLET
     Dates: start: 20131129, end: 20150419
  11. SULFAMETHOXAZOLE-TMP [Concomitant]
     Active Substance: SULFAMETHOXAZOLE\TRIMETHOPRIM
     Indication: INFECTION
  12. VOLTAREN [Concomitant]
     Active Substance: DICLOFENAC SODIUM
     Indication: ARTHRALGIA
     Dates: start: 20180312
  13. DEXLANSOPRAZOLE [Suspect]
     Active Substance: DEXLANSOPRAZOLE
     Indication: GASTROOESOPHAGEAL REFLUX DISEASE
     Route: 065
     Dates: start: 2014, end: 2016
  14. LISINOPRIL. [Concomitant]
     Active Substance: LISINOPRIL
     Indication: HYPERTENSION
     Dosage: 10 MG TABLET
     Dates: start: 20130423
  15. OXYCODONE-ACETAMINOPHEN [Concomitant]
     Active Substance: ACETAMINOPHEN\OXYCODONE HYDROCHLORIDE
     Indication: PAIN
     Dosage: 5-325
     Dates: start: 20150807
  16. OXYBUTYNIN. [Concomitant]
     Active Substance: OXYBUTYNIN CHLORIDE
     Indication: BENIGN PROSTATIC HYPERPLASIA
     Dosage: 5 MG TABLET
     Dates: start: 20150807
  17. CIALIS [Concomitant]
     Active Substance: TADALAFIL
     Indication: ERECTILE DYSFUNCTION
     Dosage: 5 MG TABLET
     Dates: start: 20151101, end: 20160620
  18. ELIQUIS [Concomitant]
     Active Substance: APIXABAN
     Indication: ANTIPLATELET THERAPY
     Dosage: 5 MG TABLET
     Dates: start: 20160308
  19. CIPROFLOXACIN. [Concomitant]
     Active Substance: CIPROFLOXACIN
     Indication: INFECTION
     Dates: start: 20150807
  20. BACLOFEN. [Concomitant]
     Active Substance: BACLOFEN
     Indication: MYALGIA
     Dates: start: 20180312
  21. ZANTAC 75 (OTC) [Concomitant]
     Dates: start: 2015, end: 2017
  22. HYDROCODONE-IBUPROFEN [Concomitant]
     Active Substance: HYDROCODONE BITARTRATE\IBUPROFEN
     Indication: PAIN
     Dosage: 7.5-200
     Dates: start: 20150514
  23. GENTAMICIN SULFATE. [Concomitant]
     Active Substance: GENTAMICIN SULFATE
     Dosage: 40 MGLML 2ML INTRAMUSCULAR INJECTION
  24. PEPCID AC [Concomitant]
     Active Substance: FAMOTIDINE
  25. AFLURIA NOS [Concomitant]
     Active Substance: INFLUENZA VIRUS VACCINE TRIVALENT TYPE A+B AFLURIA
     Indication: INFLUENZA
     Dates: start: 20141002, end: 20151020
  26. DOCUSATE SODIUM. [Concomitant]
     Active Substance: DOCUSATE SODIUM
     Indication: DIARRHOEA
     Dosage: 100 MG SOFTGEL
     Dates: start: 20150807
  27. LECITHIN [Concomitant]
     Active Substance: LECITHIN
     Dosage: 1200 MG
  28. ASPIRIN. [Concomitant]
     Active Substance: ASPIRIN
     Dosage: 325 MG
  29. DICLOFENAC [Concomitant]
     Active Substance: DICLOFENAC
     Dates: start: 20180103, end: 20180312
  30. OMEGA-3 TRIGLYCERIDES [Concomitant]
     Indication: BLOOD CHOLESTEROL INCREASED
     Dosage: 1 GM CAP
     Dates: start: 20140620
  31. ALLOPURINOL. [Concomitant]
     Active Substance: ALLOPURINOL
     Indication: GOUT
     Dosage: 100 MG TABLET
     Dates: start: 20151009
  32. NEXIUM 24HR [Suspect]
     Active Substance: ESOMEPRAZOLE MAGNESIUM
     Route: 048
     Dates: start: 201501, end: 201512
  33. ESOMEPRAZOLE. [Suspect]
     Active Substance: ESOMEPRAZOLE MAGNESIUM
     Indication: GASTROOESOPHAGEAL REFLUX DISEASE
     Route: 065
     Dates: start: 2014, end: 2016
  34. AMOXICILLIN. [Concomitant]
     Active Substance: AMOXICILLIN
     Indication: ANTIBIOTIC PROPHYLAXIS
     Dates: start: 20150514
  35. ROSUVASTATIN. [Concomitant]
     Active Substance: ROSUVASTATIN
     Indication: BLOOD CHOLESTEROL INCREASED
     Dates: start: 20160531
  36. GABAPENTIN. [Concomitant]
     Active Substance: GABAPENTIN
     Indication: NEUROPATHY PERIPHERAL
     Dates: start: 20180530
  37. INDOMETHACIN. [Concomitant]
     Active Substance: INDOMETHACIN
     Indication: GOUT
     Dosage: 25 MG CAPSULE
     Dates: start: 20150311, end: 20160715
  38. FISH OIL [Concomitant]
     Active Substance: FISH OIL
     Dosage: 1200 MG
  39. CENTRUM SILVER [Concomitant]
     Active Substance: MINERALS\VITAMINS

REACTIONS (2)
  - Acute kidney injury [Recovered/Resolved]
  - Renal failure [Unknown]

NARRATIVE: CASE EVENT DATE: 20150608
